FAERS Safety Report 18251779 (Version 1)
Quarter: 2020Q3

REPORT INFORMATION
  Report Type: Spontaneous
  Country: US (occurrence: US)
  Receive Date: 20200910
  Receipt Date: 20200910
  Transmission Date: 20201103
  Serious: Yes (Death, Hospitalization, Other)
  Sender: FDA-Public Use
  Company Number: US-PFIZER INC-2020342192

PATIENT
  Age: 44 Year
  Sex: Male

DRUGS (4)
  1. SULFAMETHOXAZOLE/TRIMETHOPRIM [Suspect]
     Active Substance: SULFAMETHOXAZOLE\TRIMETHOPRIM
     Dosage: UNK (ONE DOUBLE STRENGTH TABLET)
     Route: 048
     Dates: start: 19931201
  2. AMITRIPTYLINE [Concomitant]
     Active Substance: AMITRIPTYLINE
     Dosage: 25 MG (ONE DOSE)
     Dates: start: 19931115
  3. SULFAMETHOXAZOLE/TRIMETHOPRIM [Suspect]
     Active Substance: SULFAMETHOXAZOLE\TRIMETHOPRIM
     Indication: ANTIFUNGAL PROPHYLAXIS
     Dosage: UNK
  4. SULFAMETHOXAZOLE/TRIMETHOPRIM [Suspect]
     Active Substance: SULFAMETHOXAZOLE\TRIMETHOPRIM
     Dosage: UNK (ONE TABLET A DAY) 1 DOSE
     Route: 048
     Dates: start: 19931115

REACTIONS (15)
  - Erythema [Recovered/Resolved]
  - Pyrexia [Recovered/Resolved]
  - Mental status changes [Not Recovered/Not Resolved]
  - Hypotension [Recovered/Resolved]
  - Drug hypersensitivity [Unknown]
  - Diarrhoea [Recovered/Resolved]
  - Anal incontinence [Unknown]
  - Abdominal pain [Unknown]
  - Generalised oedema [Recovered/Resolved]
  - Confusional state [Unknown]
  - Lung infiltration [Recovered/Resolved]
  - Sepsis [Recovered/Resolved]
  - Staphylococcal skin infection [Recovered/Resolved]
  - Flushing [Unknown]
  - Meningitis aseptic [Unknown]

NARRATIVE: CASE EVENT DATE: 199311
